FAERS Safety Report 19628488 (Version 1)
Quarter: 2021Q3

REPORT INFORMATION
  Report Type: Other
  Country: ZA (occurrence: ZA)
  Receive Date: 20210729
  Receipt Date: 20210729
  Transmission Date: 20211014
  Serious: Yes (Other)
  Sender: FDA-Public Use
  Company Number: ZA-ROCHE-2879803

PATIENT
  Age: 72 Year
  Sex: Female

DRUGS (1)
  1. LUCENTIS [Suspect]
     Active Substance: RANIBIZUMAB
     Indication: NEOVASCULAR AGE-RELATED MACULAR DEGENERATION
     Dosage: 0.5 MG, QMO
     Route: 050
     Dates: start: 20210108

REACTIONS (3)
  - Visual acuity reduced [Unknown]
  - Subretinal fibrosis [Unknown]
  - Retinal thickening [Unknown]

NARRATIVE: CASE EVENT DATE: 202102
